FAERS Safety Report 4761266-1 (Version None)
Quarter: 2005Q3

REPORT INFORMATION
  Report Type: 
  Country: None (occurrence: None)
  Receive Date: 20050901
  Receipt Date: 20050825
  Transmission Date: 20060218
  Serious: Yes (Death)
  Sender: FDA-Public Use
  Company Number: 200510805BVD

PATIENT
  Age: 81 Year
  Sex: Female

DRUGS (4)
  1. MOXIFLOXACIN HCL [Suspect]
     Dosage: 400 MG, TOTAL DAILY, ORAL
     Route: 048
     Dates: start: 20050721
  2. METOPROLOL [Concomitant]
  3. TAXILAN [Concomitant]
  4. FOSAMAX [Concomitant]

REACTIONS (1)
  - SUDDEN DEATH [None]
